FAERS Safety Report 4459058-6 (Version None)
Quarter: 2004Q3

REPORT INFORMATION
  Report Type: 
  Country: None (occurrence: None)
  Receive Date: 20040922
  Receipt Date: 20040922
  Transmission Date: 20050211
  Serious: Yes (Life-Threatening, Hospitalization)
  Sender: FDA-Public Use
  Company Number: None

PATIENT
  Age: 23 Year
  Sex: Female
  Weight: 68 kg

DRUGS (1)
  1. NORINYL :ETHINYL ESTRADIOL; NORETHINDRONE [Suspect]
     Indication: CONTRACEPTION
     Dosage: ONCE DAILY BY MOUTH

REACTIONS (2)
  - FATIGUE [None]
  - INTRACRANIAL VENOUS SINUS THROMBOSIS [None]
